FAERS Safety Report 7274269-2 (Version None)
Quarter: 2011Q1

REPORT INFORMATION
  Report Type: 
  Country: None (occurrence: None)
  Receive Date: 20110204
  Receipt Date: 20110121
  Transmission Date: 20110831
  Serious: Yes (Other)
  Sender: FDA-Public Use
  Company Number: DE-RANBAXY-2011R1-41575

PATIENT
  Age: 60 Year
  Sex: Female

DRUGS (1)
  1. CLINDAMYCIN [Suspect]
     Indication: ALVEOLAR OSTEITIS
     Dosage: 600 MG, UNK
     Route: 048

REACTIONS (2)
  - FUNGAL INFECTION [None]
  - ABDOMINAL DISCOMFORT [None]
